FAERS Safety Report 8796638 (Version 4)
Quarter: 2014Q1

REPORT INFORMATION
  Report Type: Report from Study
  Country: SN (occurrence: SN)
  Receive Date: 20120919
  Receipt Date: 20140310
  Transmission Date: 20141002
  Serious: Yes (Other)
  Sender: FDA-Public Use
  Company Number: SN-GILEAD-2012-0057184

PATIENT
  Age: 33 Year
  Sex: Female
  Weight: 63 kg

DRUGS (4)
  1. EMTRICITABINE/TENOFOVIR DISOPROXIL FUMARATE [Suspect]
     Indication: HIV INFECTION
     Dosage: 1 DF, QD
     Route: 048
     Dates: start: 20101210
  2. DARUNAVIR [Suspect]
     Indication: HIV INFECTION
     Dosage: 800 MG, QD
     Route: 048
     Dates: start: 20101210
  3. RITONAVIR [Suspect]
     Indication: HIV INFECTION
     Dosage: 100 MG, QD
     Route: 048
     Dates: start: 20101210
  4. LOPINAVIR W/RITONAVIR [Suspect]
     Indication: HIV INFECTION
     Dosage: 4 DF, QD
     Route: 048

REACTIONS (1)
  - Abortion spontaneous [Recovered/Resolved]
